FAERS Safety Report 5990774-0 (Version None)
Quarter: 2008Q4

REPORT INFORMATION
  Report Type: 
  Country: None (occurrence: None)
  Receive Date: 20081202
  Receipt Date: 20080226
  Transmission Date: 20090506
  Serious: Yes (Other)
  Sender: FDA-Public Use
  Company Number: WAES 0802USA05761

PATIENT
  Age: 88 Year
  Sex: Female

DRUGS (3)
  1. FOSAMAX [Suspect]
     Indication: OSTEOPOROSIS
     Dosage: PO
     Route: 048
     Dates: start: 20010101, end: 20070101
  2. COZAAR [Concomitant]
  3. LOVASTATIN [Concomitant]

REACTIONS (4)
  - ADVERSE EVENT [None]
  - FISTULA [None]
  - OSTEONECROSIS [None]
  - RASH [None]
